FAERS Safety Report 5401727-5 (Version None)
Quarter: 2007Q3

REPORT INFORMATION
  Report Type: 
  Country: None (occurrence: None)
  Receive Date: 20070731
  Receipt Date: 20070719
  Transmission Date: 20080115
  Serious: Yes (Other)
  Sender: FDA-Public Use
  Company Number: US-PFIZER INC-2007060585

PATIENT
  Age: 83 Year
  Sex: Male

DRUGS (3)
  1. SOLU-MEDROL [Suspect]
  2. PLAVIX [Suspect]
     Route: 048
  3. WARFARIN SODIUM [Suspect]
     Route: 048

REACTIONS (3)
  - ABASIA [None]
  - BLUE TOE SYNDROME [None]
  - JAUNDICE [None]
